FAERS Safety Report 4557753-1 (Version None)
Quarter: 2005Q1

REPORT INFORMATION
  Report Type: 
  Country: None (occurrence: None)
  Receive Date: 20050103
  Receipt Date: 20041028
  Transmission Date: 20050727
  Serious: Yes (Other)
  Sender: FDA-Public Use
  Company Number: 2004UW16804

PATIENT
  Age: 50 Year
  Sex: Female
  Weight: 69.8539 kg

DRUGS (4)
  1. CRESTOR [Suspect]
     Dosage: 10 MG DAILY PO
     Route: 048
     Dates: start: 20040706, end: 20040803
  2. PRILOSEC [Concomitant]
  3. LIMBITROL [Concomitant]
  4. DARVOCET-N 100 [Concomitant]

REACTIONS (4)
  - BLOOD CREATINE PHOSPHOKINASE INCREASED [None]
  - LIVER FUNCTION TEST ABNORMAL [None]
  - MYALGIA [None]
  - PAIN IN EXTREMITY [None]
